FAERS Safety Report 21879190 (Version 1)
Quarter: 2023Q1

REPORT INFORMATION
  Report Type: Spontaneous
  Country: US (occurrence: None)
  Receive Date: 20230117
  Receipt Date: 20230117
  Transmission Date: 20230417
  Serious: Yes (Death)
  Sender: FDA-Public Use
  Company Number: None

PATIENT
  Age: 63 Year
  Sex: Male

DRUGS (11)
  1. LOKELMA [Suspect]
     Active Substance: SODIUM ZIRCONIUM CYCLOSILICATE
     Indication: Hyperkalaemia
     Dosage: FREQUENCY : 3 TIMES A WEEK;?
     Route: 048
     Dates: start: 20210623, end: 20230110
  2. BENZONATATE [Concomitant]
  3. HYDRO/CHLOR [Concomitant]
  4. GUAIFENESIN [Concomitant]
     Active Substance: GUAIFENESIN
  5. LEVOFLOXACIN [Concomitant]
  6. DOXYCYCLINE [Concomitant]
  7. DEXCO [Concomitant]
  8. SODIUM BICARB [Concomitant]
  9. CALCITRIOL [Concomitant]
     Active Substance: CALCITRIOL
  10. LANTUS [Concomitant]
  11. LEVOTHYROXINE [Concomitant]

REACTIONS (1)
  - Renal failure [None]

NARRATIVE: CASE EVENT DATE: 20230111
